FAERS Safety Report 7093505-9 (Version None)
Quarter: 2010Q4

REPORT INFORMATION
  Report Type: 
  Country: None (occurrence: None)
  Receive Date: 20101110
  Receipt Date: 20090715
  Transmission Date: 20110411
  Serious: No
  Sender: FDA-Public Use
  Company Number: US-KINGPHARMUSA00001-K200900836

PATIENT
  Age: 18 Year
  Sex: Female

DRUGS (1)
  1. TAPAZOLE [Suspect]
     Indication: HYPERTHYROIDISM
     Dosage: UNK, QD
     Route: 048
     Dates: start: 20090706

REACTIONS (1)
  - HYPOAESTHESIA ORAL [None]
